FAERS Safety Report 4596823-9 (Version None)
Quarter: 2005Q1

REPORT INFORMATION
  Report Type: 
  Country: None (occurrence: None)
  Receive Date: 20050228
  Receipt Date: 20050214
  Transmission Date: 20050727
  Serious: No
  Sender: FDA-Public Use
  Company Number: 2005AC00281

PATIENT
  Age: 40 Year
  Sex: Male

DRUGS (2)
  1. LIGNOCAINE [Suspect]
     Dosage: 40 ML ONCE UR
     Route: 066
  2. BUPIVACAINE [Concomitant]

REACTIONS (6)
  - DRUG TOXICITY [None]
  - GRAND MAL CONVULSION [None]
  - INJURY [None]
  - LACERATION [None]
  - PARAESTHESIA ORAL [None]
  - PROCEDURAL COMPLICATION [None]
